FAERS Safety Report 21452123 (Version 1)
Quarter: 2022Q4

REPORT INFORMATION
  Report Type: Spontaneous
  Country: US (occurrence: None)
  Receive Date: 20221012
  Receipt Date: 20221012
  Transmission Date: 20230112
  Serious: Yes (Death, Life-Threatening, Hospitalization, Other)
  Sender: FDA-Public Use
  Company Number: None

PATIENT
  Age: 19 Year
  Sex: Male
  Weight: 64.5 kg

DRUGS (1)
  1. DIVALPROEX SODIUM DR [Suspect]
     Active Substance: DIVALPROEX SODIUM
     Indication: Seizure
     Dosage: FREQUENCY : 3 TIMES A DAY;?

REACTIONS (15)
  - Pancreatitis acute [None]
  - Pancreatitis necrotising [None]
  - Drug hypersensitivity [None]
  - Multiple organ dysfunction syndrome [None]
  - Acute kidney injury [None]
  - Haemofiltration [None]
  - Acute hepatic failure [None]
  - Acute respiratory failure [None]
  - Compartment syndrome [None]
  - Coagulopathy [None]
  - Disseminated intravascular coagulation [None]
  - Shock [None]
  - Transfusion [None]
  - Ventricular fibrillation [None]
  - Cardio-respiratory arrest [None]

NARRATIVE: CASE EVENT DATE: 20220917
